FAERS Safety Report 8171098-2 (Version None)
Quarter: 2012Q1

REPORT INFORMATION
  Report Type: 
  Country: None (occurrence: None)
  Receive Date: 20120228
  Receipt Date: 20120222
  Transmission Date: 20120608
  Serious: Yes (Other)
  Sender: FDA-Public Use
  Company Number: PHHY2012AR015856

PATIENT
  Sex: Female

DRUGS (1)
  1. ZOLEDRONOC ACID [Suspect]
     Indication: BONE DISORDER
     Dosage: UNK UKN, UNK
     Route: 042
     Dates: start: 20101215

REACTIONS (2)
  - CHOLELITHIASIS [None]
  - ABDOMINAL DISCOMFORT [None]
